FAERS Safety Report 11563316 (Version 1)
Quarter: 2015Q3

REPORT INFORMATION
  Report Type: Spontaneous
  Country: BE (occurrence: BE)
  Receive Date: 20150928
  Receipt Date: 20150928
  Transmission Date: 20151125
  Serious: Yes (Other)
  Sender: FDA-Public Use
  Company Number: BE-AMGEN-BELSP2015098821

PATIENT
  Age: 61 Year
  Sex: Male

DRUGS (2)
  1. VECTIBIX [Suspect]
     Active Substance: PANITUMUMAB
     Indication: PRODUCT USED FOR UNKNOWN INDICATION
     Dosage: UNK
     Route: 065
  2. CAMPTO [Concomitant]
     Active Substance: IRINOTECAN
     Dosage: UNK

REACTIONS (5)
  - Feeling hot [Unknown]
  - Dyspnoea [Unknown]
  - Autoimmune disorder [Unknown]
  - Pruritus generalised [Unknown]
  - Erythema [Unknown]
